FAERS Safety Report 9748606 (Version 1)
Quarter: 2013Q4

REPORT INFORMATION
  Report Type: Spontaneous
  Country: US (occurrence: None)
  Receive Date: 20131209
  Receipt Date: 20131209
  Transmission Date: 20140711
  Serious: Yes (Hospitalization)
  Sender: FDA-Public Use
  Company Number: None

PATIENT
  Age: 64 Year
  Sex: Male

DRUGS (2)
  1. SERTRALINE [Suspect]
     Indication: DEPRESSION
     Dosage: AM
     Route: 048
     Dates: start: 20100617, end: 20131118
  2. TRAZODONE [Suspect]
     Indication: INSOMNIA
     Dosage: AT BEDTIME
     Route: 048
     Dates: start: 20130617, end: 20131118

REACTIONS (6)
  - Serotonin syndrome [None]
  - Erythema [None]
  - Body temperature increased [None]
  - Hyperreflexia [None]
  - Muscle rigidity [None]
  - Heart rate increased [None]
